FAERS Safety Report 8479328-4 (Version None)
Quarter: 2012Q2

REPORT INFORMATION
  Report Type: 
  Country: None (occurrence: None)
  Receive Date: 20120629
  Receipt Date: 20120625
  Transmission Date: 20120825
  Serious: Yes (Death)
  Sender: FDA-Public Use
  Company Number: AU-ROXANE LABORATORIES, INC.-2012-RO-01482RO

PATIENT
  Sex: Male

DRUGS (2)
  1. HEROIN [Suspect]
  2. CODEINE SULFATE [Suspect]

REACTIONS (1)
  - STUPOR [None]
